FAERS Safety Report 9033039 (Version 3)
Quarter: 2013Q2

REPORT INFORMATION
  Report Type: Spontaneous
  Country: US (occurrence: US)
  Receive Date: 20130128
  Receipt Date: 20130410
  Transmission Date: 20140414
  Serious: No
  Sender: FDA-Public Use
  Company Number: US-JNJFOC-20130112355

PATIENT
  Age: 69 Year
  Sex: Male
  Weight: 88.45 kg

DRUGS (1)
  1. LISTERINE TOOTH DEFENSE MOUTHWASH MINT [Suspect]
     Indication: DENTAL DISORDER PROPHYLAXIS
     Dosage: JUST A SWISH OF IT
     Route: 048
     Dates: end: 20130109

REACTIONS (3)
  - Gingival infection [Not Recovered/Not Resolved]
  - Gingival swelling [Recovering/Resolving]
  - Gingival bleeding [Recovering/Resolving]
